FAERS Safety Report 7487255-4 (Version None)
Quarter: 2011Q2

REPORT INFORMATION
  Report Type: 
  Country: None (occurrence: None)
  Receive Date: 20110518
  Receipt Date: 20101228
  Transmission Date: 20111010
  Serious: Yes (Hospitalization, Other)
  Sender: FDA-Public Use
  Company Number: US-BAYER-201033940NA

PATIENT
  Age: 27 Year
  Sex: Female
  Weight: 71 kg

DRUGS (4)
  1. DROSPIRENONE AND ETHINYL ESTRADIOL [Suspect]
     Indication: PRODUCT USED FOR UNKNOWN INDICATION
     Route: 048
  2. MIRENA [Suspect]
     Indication: PRODUCT USED FOR UNKNOWN INDICATION
     Dosage: FREQUENCY: CONTINUOUS
     Route: 015
     Dates: start: 20090331
  3. YAZ [Suspect]
     Indication: CONTRACEPTION
     Route: 048
     Dates: start: 20080101, end: 20090101
  4. YASMIN [Suspect]
     Indication: PRODUCT USED FOR UNKNOWN INDICATION
     Route: 048
     Dates: start: 20050401, end: 20051201

REACTIONS (5)
  - PAIN [None]
  - GALLBLADDER DISORDER [None]
  - CERVICAL DYSPLASIA [None]
  - CHOLECYSTITIS CHRONIC [None]
  - CHOLELITHIASIS [None]
